FAERS Safety Report 7569183-9 (Version None)
Quarter: 2011Q2

REPORT INFORMATION
  Report Type: 
  Country: None (occurrence: None)
  Receive Date: 20110623
  Receipt Date: 20110610
  Transmission Date: 20111010
  Serious: Yes (Other)
  Sender: FDA-Public Use
  Company Number: PHFR2011GB03631

PATIENT
  Age: 64 Year
  Sex: Male

DRUGS (2)
  1. CLOZAPINE [Suspect]
     Dosage: 100 MG, ONCE/SINGLE
     Route: 065
     Dates: start: 20110610
  2. OLANZAPINE [Concomitant]

REACTIONS (4)
  - HYPOTENSION [None]
  - SEDATION [None]
  - HEART RATE DECREASED [None]
  - WRONG DRUG ADMINISTERED [None]
